FAERS Safety Report 8225020 (Version 3)
Quarter: 2012Q4

REPORT INFORMATION
  Report Type: Report from Study
  Country: FR (occurrence: FR)
  Receive Date: 20111103
  Receipt Date: 20121123
  Transmission Date: 20130627
  Serious: Yes (Other)
  Sender: FDA-Public Use
  Company Number: PHHO2011FR18178

PATIENT
  Age: 23 Year
  Sex: Male
  Weight: 80 kg

DRUGS (7)
  1. ZOLEDRONATE [Suspect]
     Indication: BONE SARCOMA
     Dosage: UNK
     Route: 042
     Dates: start: 20080128
  2. CISPLATIN [Suspect]
     Indication: BONE SARCOMA
     Dosage: UNK
     Route: 042
     Dates: start: 20080122
  3. HOLOXAN [Suspect]
     Indication: BONE SARCOMA
     Dosage: UNK
     Route: 042
     Dates: start: 20080123
  4. DOXORUBICIN [Concomitant]
     Indication: BONE SARCOMA
     Dosage: UNK
     Route: 042
     Dates: start: 20080122
  5. KALEORID [Concomitant]
  6. MAGNE B6 [Concomitant]
  7. PHOSPHONEUROS [Concomitant]

REACTIONS (1)
  - Fanconi syndrome [Not Recovered/Not Resolved]
